FAERS Safety Report 14313754 (Version 1)
Quarter: 2017Q4

REPORT INFORMATION
  Report Type: Spontaneous
  Country: US (occurrence: US)
  Receive Date: 20171220
  Receipt Date: 20171220
  Transmission Date: 20180321
  Serious: No
  Sender: FDA-Public Use
  Company Number: None

PATIENT
  Age: 76 Year
  Sex: Female

DRUGS (1)
  1. IBRANCE [Suspect]
     Active Substance: PALBOCICLIB
     Indication: BREAST CANCER FEMALE
     Dosage: 100 MG 100 MG ONCE DAILY FOR 21 DAYS ON AND 7 DAYS OFF ORAL
     Route: 048
     Dates: start: 20160316

REACTIONS (1)
  - Stomatitis [None]

NARRATIVE: CASE EVENT DATE: 20171220
